FAERS Safety Report 8320059 (Version 3)
Quarter: 2019Q1

REPORT INFORMATION
  Report Type: Spontaneous
  Country: FR (occurrence: FR)
  Receive Date: 20120103
  Receipt Date: 20190304
  Transmission Date: 20190418
  Serious: Yes (Hospitalization, Other)
  Sender: FDA-Public Use
  Company Number: FR-SANOFI-AVENTIS-2011SA083234

PATIENT
  Age: 14 Year
  Sex: Female
  Weight: 37 kg

DRUGS (19)
  1. TACROLIMUS. [Interacting]
     Active Substance: TACROLIMUS
     Dosage: .2 MG,BID
     Route: 048
     Dates: start: 20110921, end: 20111006
  2. MYCOPHENOLATE MOFETIL. [Concomitant]
     Active Substance: MYCOPHENOLATE MOFETIL
     Dosage: 500 MG,QD
     Dates: start: 20111010
  3. CREON [Concomitant]
     Active Substance: PANCRELIPASE AMYLASE\PANCRELIPASE LIPASE\PANCRELIPASE PROTEASE
     Dosage: UNK
  4. TACROLIMUS. [Interacting]
     Active Substance: TACROLIMUS
     Dosage: .5 MG,BID
     Route: 048
     Dates: start: 20111006
  5. VORICONAZOLE. [Interacting]
     Active Substance: VORICONAZOLE
     Indication: BRONCHOPULMONARY ASPERGILLOSIS
     Dosage: 200 MG,BID
     Route: 048
     Dates: start: 20110912, end: 20110928
  6. AZITHROMYCIN ANHYDROUS. [Interacting]
     Active Substance: AZITHROMYCIN ANHYDROUS
     Dosage: 250 MG,TIW
     Route: 048
     Dates: start: 20110912
  7. TACROLIMUS. [Interacting]
     Active Substance: TACROLIMUS
     Indication: LUNG TRANSPLANT
     Dosage: UNK
  8. TACROLIMUS. [Interacting]
     Active Substance: TACROLIMUS
     Dosage: .5 MG,BID
     Route: 048
     Dates: start: 20110916, end: 20110921
  9. TACROLIMUS. [Interacting]
     Active Substance: TACROLIMUS
     Dosage: UNK
  10. ETHAMBUTOL [Concomitant]
     Active Substance: ETHAMBUTOL HYDROCHLORIDE
     Indication: TUBERCULOSIS
     Dosage: UNK
     Dates: start: 20110608
  11. RETINOL [Concomitant]
     Active Substance: RETINOL
     Dosage: UNK
  12. VORICONAZOLE. [Interacting]
     Active Substance: VORICONAZOLE
     Dosage: UNK UNK,UNK
     Route: 065
     Dates: start: 201111
  13. CASPOFUNGIN ACETATE. [Interacting]
     Active Substance: CASPOFUNGIN ACETATE
     Indication: ASPERGILLUS INFECTION
     Dosage: 1 DF,QD
     Route: 042
     Dates: start: 20110913, end: 20110922
  14. AZITHROMYCIN ANHYDROUS. [Interacting]
     Active Substance: AZITHROMYCIN ANHYDROUS
     Indication: OPPORTUNISTIC INFECTION PROPHYLAXIS
     Dosage: 500 MG,QOD
     Route: 048
  15. MYCOPHENOLATE MOFETIL. [Concomitant]
     Active Substance: MYCOPHENOLATE MOFETIL
     Indication: LUNG TRANSPLANT
     Dosage: 1 G,QD
     Dates: start: 20051020, end: 20111010
  16. INSULIN [Concomitant]
     Active Substance: INSULIN NOS
     Dosage: UNK
  17. RIFADINE [Suspect]
     Active Substance: RIFAMPIN
     Indication: PULMONARY TUBERCULOSIS
     Dosage: 600 MG,QD
     Route: 048
     Dates: start: 20110608, end: 20111009
  18. RIMIFON [Concomitant]
     Active Substance: ISONIAZID
     Indication: TUBERCULOSIS
     Dosage: 300 MG,QD
     Dates: start: 20110608
  19. PIRILENE [Concomitant]
     Active Substance: PYRAZINAMIDE
     Indication: TUBERCULOSIS
     Dosage: UNK
     Dates: start: 20110608

REACTIONS (3)
  - Drug interaction [Recovered/Resolved]
  - Acute kidney injury [Recovered/Resolved]
  - Drug level increased [Recovered/Resolved]

NARRATIVE: CASE EVENT DATE: 20110921
